FAERS Safety Report 6106646-7 (Version None)
Quarter: 2009Q1

REPORT INFORMATION
  Report Type: 
  Country: None (occurrence: None)
  Receive Date: 20090306
  Receipt Date: 20090226
  Transmission Date: 20090719
  Serious: Yes (Other)
  Sender: FDA-Public Use
  Company Number: US-JNJCH-2009005535

PATIENT
  Sex: Female

DRUGS (1)
  1. SUDAFED S.A. [Suspect]
     Indication: DRUG USE FOR UNKNOWN INDICATION
     Dosage: TEXT:UNSPECIFIED
     Route: 048

REACTIONS (5)
  - DIZZINESS [None]
  - HEART RATE INCREASED [None]
  - TREMOR [None]
  - VISION BLURRED [None]
  - VOMITING [None]
